FAERS Safety Report 4629453-0 (Version None)
Quarter: 2005Q2

REPORT INFORMATION
  Report Type: 
  Country: None (occurrence: None)
  Receive Date: 20050405
  Receipt Date: 20050322
  Transmission Date: 20051028
  Serious: Yes (Life-Threatening)
  Sender: FDA-Public Use
  Company Number: GB-2004-034558

PATIENT
  Age: 45 Year
  Sex: Female
  Weight: 70 kg

DRUGS (1)
  1. MIRENA [Suspect]
     Dosage: 20UG/DAY, CONT, INTRA-UTERINE
     Route: 015
     Dates: start: 20010101

REACTIONS (2)
  - BREAST CANCER FEMALE [None]
  - PROGESTERONE RECEPTOR ASSAY POSITIVE [None]
